FAERS Safety Report 10082221 (Version 2)
Quarter: 2014Q2

REPORT INFORMATION
  Report Type: Spontaneous
  Country: JP (occurrence: JP)
  Receive Date: 20140416
  Receipt Date: 20140613
  Transmission Date: 20141212
  Serious: Yes (Death)
  Sender: FDA-Public Use
  Company Number: JP-EISAI INC-E2020-13902-SPO-JP

PATIENT
  Age: 78 Year
  Sex: Male

DRUGS (12)
  1. ARICEPT [Suspect]
     Indication: DEMENTIA
     Route: 048
     Dates: start: 20140312, end: 20140322
  2. EPENARD [Concomitant]
     Indication: MUSCULOSKELETAL STIFFNESS
     Route: 048
     Dates: end: 20140322
  3. TSUMURA HACHIMIJIOGAN EXTRACT GRANULES FOR ETHICAL USE [Concomitant]
     Indication: POLLAKIURIA
     Route: 048
     Dates: end: 20140322
  4. MICARDIS [Concomitant]
     Indication: HYPERTENSION
     Route: 048
     Dates: end: 20140322
  5. NIFEDIPINE CR [Concomitant]
     Indication: HYPERTENSION
     Route: 048
     Dates: end: 20140322
  6. LANSOPRAZOLE OD [Concomitant]
     Indication: PROPHYLAXIS AGAINST GASTROINTESTINAL ULCER
     Route: 048
     Dates: end: 20140322
  7. TRICHLORMETHIAZIDE [Concomitant]
     Indication: HYPERTENSION
     Route: 048
     Dates: end: 20140322
  8. BAYASPIRIN [Concomitant]
     Indication: PROPHYLAXIS
     Route: 048
     Dates: end: 20140322
  9. CLOTIAZEPAM [Concomitant]
     Indication: PRODUCT USED FOR UNKNOWN INDICATION
     Route: 048
     Dates: end: 20140322
  10. TERBINAFINE [Concomitant]
     Indication: ONYCHOMYCOSIS
     Route: 048
     Dates: start: 20140206, end: 20140322
  11. ZOLPIDEM TARTRATE [Concomitant]
     Indication: INSOMNIA
     Route: 048
     Dates: end: 20140322
  12. ATENOLOL [Concomitant]
     Indication: HYPERTENSION
     Route: 048
     Dates: end: 20140322

REACTIONS (1)
  - Completed suicide [Fatal]
